FAERS Safety Report 9521680 (Version 7)
Quarter: 2014Q3

REPORT INFORMATION
  Report Type: Report from Study
  Country: CA (occurrence: CA)
  Receive Date: 20130913
  Receipt Date: 20140717
  Transmission Date: 20150326
  Serious: Yes (Other)
  Sender: FDA-Public Use
  Company Number: PHHY2012CA123316

PATIENT
  Age: 55 Year
  Sex: Female

DRUGS (5)
  1. TECTA [Concomitant]
     Active Substance: PANTOPRAZOLE MAGNESIUM
     Dosage: UNK UKN, UNK
  2. MULTI-VIT [Concomitant]
     Active Substance: VITAMINS
     Dosage: UNK UKN, UNK
  3. ANTIHYPERTENSIVES [Concomitant]
     Active Substance: UNSPECIFIED INGREDIENT
     Dosage: UNK UKN, UNK
  4. ZOPICLONE [Concomitant]
     Active Substance: ZOPICLONE
     Dosage: 7.5 MG, QHS
  5. GLEEVEC [Suspect]
     Active Substance: IMATINIB MESYLATE
     Indication: GASTROINTESTINAL STROMAL TUMOUR
     Dosage: 400 MG, QD
     Route: 048
     Dates: start: 201207, end: 20140407

REACTIONS (40)
  - Blister [Not Recovered/Not Resolved]
  - Erythema [Unknown]
  - Skin discolouration [Unknown]
  - Eyelid irritation [Unknown]
  - Fatigue [Unknown]
  - Herpes zoster [Recovered/Resolved]
  - Eye pruritus [Unknown]
  - Pruritus generalised [Unknown]
  - Blood iron decreased [Unknown]
  - Chloasma [Unknown]
  - Polyp [Unknown]
  - Neuralgia [Not Recovered/Not Resolved]
  - Procedural pain [Unknown]
  - Red blood cell count decreased [Unknown]
  - Pruritus [Unknown]
  - Abdominal discomfort [Unknown]
  - Eye irritation [Not Recovered/Not Resolved]
  - Dark circles under eyes [Unknown]
  - Rash [Recovering/Resolving]
  - Malaise [Unknown]
  - Hair texture abnormal [Unknown]
  - Gait disturbance [Unknown]
  - Blood count abnormal [Unknown]
  - Muscle spasms [Recovering/Resolving]
  - Dry eye [Not Recovered/Not Resolved]
  - Periorbital oedema [Unknown]
  - Eye pain [Unknown]
  - Haemoglobin decreased [Unknown]
  - Ocular icterus [Unknown]
  - Nail disorder [Unknown]
  - Acne [Not Recovered/Not Resolved]
  - Alopecia [Unknown]
  - Flatulence [Unknown]
  - Insomnia [Not Recovered/Not Resolved]
  - Haematochezia [Recovered/Resolved]
  - Hair colour changes [Unknown]
  - Pigmentation disorder [Not Recovered/Not Resolved]
  - Skin hypopigmentation [Not Recovered/Not Resolved]
  - Abdominal distension [Unknown]
  - Abdominal pain upper [Recovering/Resolving]

NARRATIVE: CASE EVENT DATE: 201210
